FAERS Safety Report 16578303 (Version 2)
Quarter: 2019Q3

REPORT INFORMATION
  Report Type: Spontaneous
  Country: US (occurrence: US)
  Receive Date: 20190716
  Receipt Date: 20190816
  Transmission Date: 20191004
  Serious: Yes (Other)
  Sender: FDA-Public Use
  Company Number: US-FRESENIUS MEDICAL CARE RENAL THERAPIES GROUP-FMC-1907-000836

PATIENT
  Weight: 85.5 kg

DRUGS (14)
  1. GABAPENTIN. [Concomitant]
     Active Substance: GABAPENTIN
     Dosage: 300 MG CAPSULE, 1 CAP PO THREE TIMES  DAILY
  2. ERGOCALCIFEROL. [Concomitant]
     Active Substance: ERGOCALCIFEROL
     Dosage: VITAMIN D( 2), 50,000 UNITS PO EVERY SUNDAY
  3. IMDUR [Concomitant]
     Active Substance: ISOSORBIDE MONONITRATE
     Dosage: 30 MG TABLET, EXTENDED RELEASE 1 TAB PO DAILY
  4. TUMS [Concomitant]
     Active Substance: CALCIUM CARBONATE
     Dosage: 1000 MG TABLET, CHEWABLE, TWO TABS BID BETWEEN MEALS
  5. DELFLEX [Suspect]
     Active Substance: CALCIUM CHLORIDE\DEXTROSE\MAGNESIUM CHLORIDE\SODIUM CHLORIDE\SODIUM LACTATE
     Indication: END STAGE RENAL DISEASE
     Route: 033
     Dates: start: 20180213
  6. ASPIRIN 81 [Concomitant]
     Active Substance: ASPIRIN
     Dosage: 81 MG TABLET, ENTERIC COATED, 1 TAB PO DAILY
  7. ATORVASTATIN [Concomitant]
     Active Substance: ATORVASTATIN
     Dosage: 40 MG TABLET, 1 TAB PO DAILY
  8. UBIQUINONE [Concomitant]
     Active Substance: UBIDECARENONE
     Dosage: CO ENZYME Q10, TAKE AS DIRECTED PM FOR CRAMPS
  9. LANTUS [Concomitant]
     Active Substance: INSULIN GLARGINE
     Dosage: INJECT 11 UNITS SQ DAILY AT BED TIME
  10. RENVELA [Concomitant]
     Active Substance: SEVELAMER CARBONATE
     Dosage: 800 MG TABLET, 3 TABLETS PO THREE TIMES DAILY WITH MEALS AND 1 WITH SNACKS
  11. TAMSULOSIN [Concomitant]
     Active Substance: TAMSULOSIN
     Dosage: 0.4MG CAPSULE, 1TAB PO BID
  12. COMBIGAN [Concomitant]
     Active Substance: BRIMONIDINE TARTRATE\TIMOLOL MALEATE
     Dosage: PLACE ONE DROP INTO BOTH EYES Q12 HRS
  13. CLOPIDOGREL [Concomitant]
     Active Substance: CLOPIDOGREL BISULFATE
     Dosage: 75 MG TABLET, 1 TAB PO DAILY
  14. NEPHRO VITE RX [Concomitant]
     Active Substance: ASCORBIC ACID\BIOTIN\CALCIUM PANTOTHENATE\CYANOCOBALAMIN\FOLIC ACID\NIACINAMIDE\PYRIDOXINE HYDROCHLORIDE\RIBOFLAVIN\THIAMINE MONONITRATE
     Dosage: 1 TABLET PO DAILY

REACTIONS (1)
  - Peritonitis bacterial [Recovered/Resolved]
